FAERS Safety Report 25820544 (Version 3)
Quarter: 2025Q4

REPORT INFORMATION
  Report Type: Spontaneous
  Country: EU (occurrence: EU)
  Receive Date: 20250919
  Receipt Date: 20251221
  Transmission Date: 20260117
  Serious: Yes (Other)
  Sender: UCB
  Company Number: None

PATIENT
  Age: 68 Year
  Weight: 74 kg

DRUGS (3)
  1. BIMZELX [Suspect]
     Active Substance: BIMEKIZUMAB-BKZX
     Indication: Psoriasis
     Dosage: 320 MILLIGRAM, EV 4 WEEKS
  2. IMULDOSA [Concomitant]
     Active Substance: USTEKINUMAB-SRLF
     Indication: Psoriasis
     Dosage: UNK
  3. CLOBETASOL [Concomitant]
     Active Substance: CLOBETASOL
     Indication: Psoriasis
     Dosage: UNK

REACTIONS (14)
  - Groin abscess [Recovering/Resolving]
  - Oral mucosal blistering [Recovered/Resolved]
  - Psoriasis [Recovering/Resolving]
  - Fatigue [Recovering/Resolving]
  - Malaise [Recovering/Resolving]
  - Periodontitis [Recovered/Resolved]
  - Subcutaneous abscess [Recovering/Resolving]
  - Middle ear effusion [Not Recovered/Not Resolved]
  - Tinnitus [Recovering/Resolving]
  - Ear pain [Not Recovered/Not Resolved]
  - Skin fissures [Not Recovered/Not Resolved]
  - Social problem [Not Recovered/Not Resolved]
  - Hypoacusis [Recovered/Resolved]
  - Ear infection staphylococcal [Recovering/Resolving]
